FAERS Safety Report 20871713 (Version 2)
Quarter: 2022Q2

REPORT INFORMATION
  Report Type: Spontaneous
  Country: BR (occurrence: BR)
  Receive Date: 20220525
  Receipt Date: 20220628
  Transmission Date: 20220721
  Serious: Yes (Other)
  Sender: FDA-Public Use
  Company Number: BR-LEO Pharma-342835

PATIENT
  Sex: Female
  Weight: 89 kg

DRUGS (1)
  1. AZELAIC ACID [Suspect]
     Active Substance: AZELAIC ACID
     Indication: Acne
     Dosage: STARTED : 1 MONTH AGO?STOPPED : 1 WEEK AFTER THE USE

REACTIONS (4)
  - Erythema [Recovered/Resolved]
  - Abortion induced [Unknown]
  - Maternal exposure during pregnancy [Unknown]
  - Pruritus [Recovered/Resolved]
